FAERS Safety Report 13440009 (Version 1)
Quarter: 2017Q2

REPORT INFORMATION
  Report Type: Report from Study
  Country: US (occurrence: AR)
  Receive Date: 20170413
  Receipt Date: 20170413
  Transmission Date: 20170830
  Serious: Yes (Other)
  Sender: FDA-Public Use
  Company Number: US-SUNOVION-2017SUN001553

PATIENT
  Sex: Female

DRUGS (2)
  1. INDACATEROL [Suspect]
     Active Substance: INDACATEROL
     Indication: ASTHMA
  2. INDACATEROL [Suspect]
     Active Substance: INDACATEROL
     Indication: CHRONIC OBSTRUCTIVE PULMONARY DISEASE
     Dosage: 1 DF, QD
     Route: 065

REACTIONS (2)
  - Product use issue [Unknown]
  - Leukaemia [Unknown]
